FAERS Safety Report 9729035 (Version 2)
Quarter: 2014Q1

REPORT INFORMATION
  Report Type: Spontaneous
  Country: US (occurrence: US)
  Receive Date: 20131204
  Receipt Date: 20140211
  Transmission Date: 20141002
  Serious: Yes (Hospitalization)
  Sender: FDA-Public Use
  Company Number: US-BAYER-2013-145468

PATIENT
  Age: 30 Year
  Sex: Female
  Weight: 58.05 kg

DRUGS (7)
  1. YAZ [Suspect]
     Indication: CONTRACEPTION
     Dosage: UNK
     Dates: start: 201106, end: 201110
  2. YASMIN [Suspect]
  3. ADVAIR [Concomitant]
     Dosage: UNK UNK, PRN
  4. CENTRUM [Concomitant]
     Dosage: UNK
     Dates: start: 2003
  5. XANAX [Concomitant]
  6. AMBIEN [Concomitant]
  7. DOXYCYCLINE [Concomitant]

REACTIONS (2)
  - Deep vein thrombosis [None]
  - Injury [None]
